FAERS Safety Report 10023451 (Version 6)
Quarter: 2014Q2

REPORT INFORMATION
  Report Type: Report from Study
  Country: US (occurrence: US)
  Receive Date: 20140320
  Receipt Date: 20140625
  Transmission Date: 20141212
  Serious: Yes (Death, Other)
  Sender: FDA-Public Use
  Company Number: US-ALEXION PHARMACEUTICALS INC.-A201400782

PATIENT
  Sex: 0

DRUGS (9)
  1. SOLIRIS [Suspect]
     Indication: HAEMOLYTIC URAEMIC SYNDROME
     Dosage: 900 MG, QW
     Route: 042
     Dates: start: 20140220, end: 20140312
  2. SOLIRIS [Suspect]
     Dosage: 1200 MG, Q2W
     Route: 042
     Dates: start: 20140319
  3. SOLIRIS [Suspect]
     Dosage: UNK
     Route: 042
  4. ATIVAN [Concomitant]
     Indication: MINERAL SUPPLEMENTATION
     Dosage: 0.5 MG, PRN
     Route: 065
     Dates: start: 20140320
  5. COMPAZINE                          /00013302/ [Concomitant]
     Indication: NAUSEA
     Dosage: 10 MG, PRN
     Route: 065
     Dates: start: 20140320
  6. FERROUS SULFATE [Concomitant]
     Indication: MINERAL SUPPLEMENTATION
     Dosage: 5 G, BID
     Route: 065
     Dates: start: 20140320
  7. LASIX                              /00032601/ [Concomitant]
     Indication: PRODUCT USED FOR UNKNOWN INDICATION
     Dosage: 40 MG, QD
     Route: 065
     Dates: start: 20140320
  8. LISINOPRIL [Concomitant]
     Indication: HYPERTENSION
     Dosage: 20 MG, QD
     Route: 065
     Dates: start: 20140320
  9. POTASSIUM CHLORIDE [Concomitant]
     Indication: PRODUCT USED FOR UNKNOWN INDICATION
     Dosage: 10 MEQ, UNK
     Route: 065
     Dates: start: 20140320

REACTIONS (8)
  - Death [Fatal]
  - Loss of consciousness [Unknown]
  - Device issue [Unknown]
  - Infusion site pain [Unknown]
  - Infusion site inflammation [Unknown]
  - Extravasation [Unknown]
  - Drug ineffective [Unknown]
  - Hypersensitivity [Unknown]
